FAERS Safety Report 24924549 (Version 1)
Quarter: 2025Q1

REPORT INFORMATION
  Report Type: Spontaneous
  Country: GR (occurrence: GR)
  Receive Date: 20250204
  Receipt Date: 20250204
  Transmission Date: 20250409
  Serious: No
  Sender: EXELIXIS
  Company Number: GR-IPSEN Group, Research and Development-2024-03696

PATIENT
  Age: 70 Year
  Sex: Male

DRUGS (3)
  1. CABOMETYX [Suspect]
     Active Substance: CABOZANTINIB S-MALATE
     Indication: Renal cancer
     Dosage: UNK UNK, QD
     Route: 065
     Dates: start: 202302, end: 202312
  2. NIVOLUMAB [Suspect]
     Active Substance: NIVOLUMAB
     Indication: Renal cancer
     Route: 065
     Dates: start: 202302, end: 202312
  3. OPRAZIUM [Concomitant]
     Indication: Gastrointestinal disorder

REACTIONS (3)
  - Onychoclasis [Unknown]
  - Hair colour changes [Unknown]
  - Diarrhoea [Unknown]
